FAERS Safety Report 4608704-2 (Version None)
Quarter: 2005Q1

REPORT INFORMATION
  Report Type: 
  Country: None (occurrence: None)
  Receive Date: 20050315
  Receipt Date: 20050209
  Transmission Date: 20050727
  Serious: Yes (Hospitalization)
  Sender: FDA-Public Use
  Company Number: FR-ROCHE-395981

PATIENT
  Age: 31 Year
  Sex: Female

DRUGS (13)
  1. RIVOTRIL [Suspect]
     Indication: EPILEPSY
     Route: 065
     Dates: start: 19900615
  2. RIVOTRIL [Suspect]
     Dosage: HALF A CLONAZEPAM AMPULE WAS ADMINISTERED AND THEN 1 MG WAS ADMINISTERED.
     Route: 065
     Dates: start: 20041223
  3. RIVOTRIL [Suspect]
     Dosage: DECREASED.
     Route: 065
  4. RIVOTRIL [Suspect]
     Route: 065
     Dates: start: 20050208
  5. RIVOTRIL [Suspect]
     Dosage: ADMINISTERED AT 8 AM AND 2 PM.
     Route: 065
     Dates: start: 20050210
  6. DIHYDANTOIN [Suspect]
     Indication: EPILEPSY
     Route: 065
     Dates: start: 19900615
  7. TEGRETOL [Suspect]
     Indication: EPILEPSY
     Route: 065
     Dates: start: 19900615, end: 20050111
  8. SPECIAFOLDINE [Suspect]
     Indication: DRUG USE FOR UNKNOWN INDICATION
     Route: 065
  9. KEPPRA [Suspect]
     Indication: EPILEPSY
     Route: 048
     Dates: start: 20041220
  10. KEPPRA [Suspect]
     Route: 048
     Dates: end: 20050110
  11. KEPPRA [Suspect]
     Route: 048
     Dates: start: 20050205
  12. KEPPRA [Suspect]
     Route: 048
     Dates: start: 20050207
  13. KEPPRA [Suspect]
     Route: 048
     Dates: start: 20050210

REACTIONS (9)
  - AGITATION [None]
  - CONSTIPATION [None]
  - DRUG EXPOSURE DURING PREGNANCY [None]
  - ELECTROENCEPHALOGRAM ABNORMAL [None]
  - GRAND MAL CONVULSION [None]
  - HYPOXIA [None]
  - LARYNGEAL OBSTRUCTION [None]
  - PETIT MAL EPILEPSY [None]
  - QUADRIPARESIS [None]
